FAERS Safety Report 15161053 (Version 1)
Quarter: 2018Q3

REPORT INFORMATION
  Report Type: Report from Study
  Country: US (occurrence: US)
  Receive Date: 20180718
  Receipt Date: 20180718
  Transmission Date: 20181010
  Serious: Yes (Other)
  Sender: FDA-Public Use
  Company Number: US-JAZZ-2018-US-004034

PATIENT
  Age: 55 Year
  Sex: Male

DRUGS (25)
  1. DOXEPIN [Concomitant]
     Active Substance: DOXEPIN
  2. SILENOR [Concomitant]
     Active Substance: DOXEPIN HYDROCHLORIDE
  3. SOMA [Concomitant]
     Active Substance: CARISOPRODOL
  4. XYREM [Suspect]
     Active Substance: SODIUM OXYBATE
     Indication: INSOMNIA
     Dosage: 2.25 G, BID
     Route: 048
     Dates: start: 201207, end: 201207
  5. XYREM [Suspect]
     Active Substance: SODIUM OXYBATE
     Dosage: 4.5 G, BID
     Route: 048
     Dates: start: 201208, end: 2012
  6. XYREM [Suspect]
     Active Substance: SODIUM OXYBATE
     Dosage: 2.25 G, BID
     Route: 048
     Dates: start: 201803, end: 201803
  7. FISH OIL CONCENTRATE [Concomitant]
     Active Substance: FISH OIL
  8. TEMAZEPAM. [Concomitant]
     Active Substance: TEMAZEPAM
  9. ZOLPIDEM [Concomitant]
     Active Substance: ZOLPIDEM\ZOLPIDEM TARTRATE
  10. VALERIANA OFFICINALIS ROOT [Concomitant]
     Active Substance: VALERIAN
  11. DIAZEPAM. [Concomitant]
     Active Substance: DIAZEPAM
  12. QUERCETIN DIHYDRATE [Concomitant]
  13. BUTRANS [Concomitant]
     Active Substance: BUPRENORPHINE
  14. RAPAFLO [Concomitant]
     Active Substance: SILODOSIN
  15. XYREM [Suspect]
     Active Substance: SODIUM OXYBATE
     Dosage: 4.5 G, BID
     Route: 048
     Dates: start: 201803
  16. AMBIEN [Suspect]
     Active Substance: ZOLPIDEM TARTRATE
     Indication: PRODUCT USE IN UNAPPROVED INDICATION
  17. CYMBALTA [Concomitant]
     Active Substance: DULOXETINE HYDROCHLORIDE
  18. TRAZODONE [Concomitant]
     Active Substance: TRAZODONE HYDROCHLORIDE
  19. CLONAZEPAM. [Concomitant]
     Active Substance: CLONAZEPAM
  20. XYREM [Suspect]
     Active Substance: SODIUM OXYBATE
     Dosage: DOSE ADJUSTMENTS
     Route: 048
     Dates: start: 201207, end: 201208
  21. BACLOFEN. [Concomitant]
     Active Substance: BACLOFEN
  22. MORNIFLUMATE [Concomitant]
     Active Substance: MORNIFLUMATE
  23. KLONOPIN [Concomitant]
     Active Substance: CLONAZEPAM
  24. ONDANSETRON HCL [Concomitant]
     Active Substance: ONDANSETRON HYDROCHLORIDE
  25. WELLBUTRIN [Concomitant]
     Active Substance: BUPROPION HYDROCHLORIDE

REACTIONS (11)
  - Pruritus [Unknown]
  - Suicide attempt [Unknown]
  - Drug ineffective [Unknown]
  - Dysarthria [Not Recovered/Not Resolved]
  - Anxiety [Unknown]
  - Drug titration error [Unknown]
  - Depression [Unknown]
  - Intentional product use issue [Unknown]
  - Tremor [Not Recovered/Not Resolved]
  - Pain [Not Recovered/Not Resolved]
  - Intentional product misuse [Unknown]

NARRATIVE: CASE EVENT DATE: 201803
